FAERS Safety Report 17078944 (Version 5)
Quarter: 2020Q4

REPORT INFORMATION
  Report Type: Spontaneous
  Country: IL (occurrence: IL)
  Receive Date: 20191127
  Receipt Date: 20201204
  Transmission Date: 20210113
  Serious: Yes (Death, Hospitalization, Other)
  Sender: FDA-Public Use
  Company Number: IL-ALEXION PHARMACEUTICALS INC.-A201917934

PATIENT
  Age: 40 Year
  Sex: Female

DRUGS (6)
  1. SOLIRIS [Suspect]
     Active Substance: ECULIZUMAB
     Indication: COMPLEMENT DEFICIENCY DISEASE
     Dosage: 900 MG, QW
     Route: 065
     Dates: start: 201905, end: 2019
  2. DOXORUBICIN [Suspect]
     Active Substance: DOXORUBICIN
     Indication: HEPATIC ANGIOSARCOMA
     Dosage: 37.5 MG/M2, UNK
     Route: 065
  3. SOLIRIS [Suspect]
     Active Substance: ECULIZUMAB
     Indication: OFF LABEL USE
     Dosage: 1200 MG, TWICE A MONTH
     Route: 065
  4. MOXYPEN                            /00249602/ [Concomitant]
     Indication: ANTIBIOTIC PROPHYLAXIS
     Dosage: UNK
     Route: 065
  5. PEGFILGRASTIM [Concomitant]
     Active Substance: PEGFILGRASTIM
     Indication: PROPHYLAXIS
     Dosage: 6 MG, UNK
     Route: 058
  6. IFOSFAMIDE. [Suspect]
     Active Substance: IFOSFAMIDE
     Indication: HEPATIC ANGIOSARCOMA
     Dosage: 1500 MG/M2, UNK
     Route: 065

REACTIONS (8)
  - Escherichia bacteraemia [Fatal]
  - Sepsis [Fatal]
  - Metabolic encephalopathy [Unknown]
  - Neurotoxicity [Unknown]
  - Pancytopenia [Unknown]
  - Gene mutation [Unknown]
  - Off label use [Recovered/Resolved]
  - Hepatic angiosarcoma [Unknown]

NARRATIVE: CASE EVENT DATE: 2019
